FAERS Safety Report 20693036 (Version 1)
Quarter: 2022Q2

REPORT INFORMATION
  Report Type: Spontaneous
  Country: US (occurrence: US)
  Receive Date: 20220410
  Receipt Date: 20220410
  Transmission Date: 20220720
  Serious: No
  Sender: FDA-Public Use
  Company Number: US-ELI_LILLY_AND_COMPANY-US202204004041

PATIENT

DRUGS (1)
  1. FORTEO [Suspect]
     Active Substance: TERIPARATIDE
     Indication: Osteoporosis postmenopausal
     Dosage: 20 MG, UNKNOWN
     Route: 058

REACTIONS (1)
  - Incorrect dose administered [Unknown]
